FAERS Safety Report 5507360-9 (Version None)
Quarter: 2007Q4

REPORT INFORMATION
  Report Type: 
  Country: None (occurrence: None)
  Receive Date: 20071102
  Receipt Date: 20071022
  Transmission Date: 20080405
  Serious: Yes (Hospitalization)
  Sender: FDA-Public Use
  Company Number: DSA_30800_2007

PATIENT
  Sex: Female

DRUGS (2)
  1. LORAZEPAM [Suspect]
     Dosage: (NOT THE PRESCRIBED AMOUNT. ORAL)
     Route: 048
     Dates: start: 20071017, end: 20071017
  2. TRIMIPRAMINE (TRIMIPRAMINE) 100 MG [Suspect]
     Dosage: (1000 MG 1X NOT THE PRESCRIBED AMOUNT.  ORAL)
     Route: 048
     Dates: start: 20071017, end: 20071017

REACTIONS (9)
  - BLOOD CREATINE PHOSPHOKINASE INCREASED [None]
  - BLOOD CREATININE INCREASED [None]
  - C-REACTIVE PROTEIN INCREASED [None]
  - DRUG TOXICITY [None]
  - GAIT DISTURBANCE [None]
  - MULTIPLE DRUG OVERDOSE INTENTIONAL [None]
  - OLIGURIA [None]
  - SOPOR [None]
  - SUICIDE ATTEMPT [None]
